FAERS Safety Report 4708101-5 (Version None)
Quarter: 2005Q2

REPORT INFORMATION
  Report Type: 
  Country: None (occurrence: None)
  Receive Date: 20050629
  Receipt Date: 20050321
  Transmission Date: 20051028
  Serious: No
  Sender: FDA-Public Use
  Company Number: 05P-163-0294654-00

PATIENT
  Age: 66 Year
  Sex: Female
  Weight: 114 kg

DRUGS (27)
  1. BENICAR [Concomitant]
  2. LANTUS [Concomitant]
  3. NOVALIN INSULIN [Concomitant]
  4. FISH OIL TABS [Concomitant]
  5. VITAMINS [Concomitant]
  6. FENOFIBRATE [Concomitant]
  7. GLIMEPIRIDE [Concomitant]
  8. ROSIGLITAZONE MALEATE [Concomitant]
  9. ZOCOR [Concomitant]
  10. BAYER [Concomitant]
  11. DEXTROPROPOXYPHENE HYDROCHLORIDE [Concomitant]
  12. ZOLPIDEM TARTRATE [Concomitant]
  13. HUMIRA [Suspect]
     Indication: RHEUMATOID ARTHRITIS
     Dosage: 40 MG, 1 IN 2 WK, SUBCUTANEOUS
     Route: 058
     Dates: start: 20050202
  14. BENICAR [Concomitant]
  15. LANTUS [Concomitant]
  16. NOVALIN INSULIN [Concomitant]
  17. FISH OIL TABS [Concomitant]
  18. VITAMINS [Concomitant]
  19. FENOFIBRATE [Concomitant]
  20. GLIMEPIRIDE [Concomitant]
  21. ROSIGLITAZONE MALEATE [Concomitant]
  22. ZOCOR [Concomitant]
  23. BAYER [Concomitant]
  24. DEXTROPROPOXYPHENE HYDROCHLORIDE [Concomitant]
  25. ZOLPIDEM TARTRATE [Concomitant]
  26. HYDROCHLOROTHIAZIDE [Concomitant]
  27. MELOXICAM [Concomitant]

REACTIONS (2)
  - BACK PAIN [None]
  - INJECTION SITE PRURITUS [None]
